FAERS Safety Report 4878797-6 (Version None)
Quarter: 2006Q1

REPORT INFORMATION
  Report Type: 
  Country: None (occurrence: None)
  Receive Date: 20060110
  Receipt Date: 20060110
  Transmission Date: 20060701
  Serious: Yes (Other)
  Sender: FDA-Public Use
  Company Number: None

PATIENT
  Age: 27 Year
  Sex: Female
  Weight: 64.4108 kg

DRUGS (2)
  1. TEQUIN [Suspect]
     Indication: ARTHROPOD BITE
     Dates: start: 20051228, end: 20051228
  2. TEQUIN [Suspect]
     Indication: INFECTION
     Dates: start: 20051228, end: 20051228

REACTIONS (1)
  - DRUG HYPERSENSITIVITY [None]
